FAERS Safety Report 4724364-4 (Version None)
Quarter: 2005Q3

REPORT INFORMATION
  Report Type: 
  Country: None (occurrence: None)
  Receive Date: 20050721
  Receipt Date: 20050707
  Transmission Date: 20060218
  Serious: No
  Sender: FDA-Public Use
  Company Number: 11765

PATIENT
  Sex: Female

DRUGS (3)
  1. VINCRISTINE [Suspect]
     Indication: OVARIAN DYSGERMINOMA STAGE UNSPECIFIED
  2. DACTINOMYCIN [Suspect]
     Indication: OVARIAN DYSGERMINOMA STAGE UNSPECIFIED
  3. CYCLOPHOSPHAMIDE [Suspect]
     Indication: OVARIAN DYSGERMINOMA STAGE UNSPECIFIED

REACTIONS (1)
  - MENOMETRORRHAGIA [None]
